FAERS Safety Report 9653320 (Version 2)
Quarter: 2013Q4

REPORT INFORMATION
  Report Type: Report from Study
  Country: US (occurrence: US)
  Receive Date: 20131029
  Receipt Date: 20131029
  Transmission Date: 20140711
  Serious: Yes (Hospitalization, Other)
  Sender: FDA-Public Use
  Company Number: US-ASTRAZENECA-2013SE65336

PATIENT
  Age: 66 Year
  Sex: Female
  Weight: 103.9 kg

DRUGS (9)
  1. ARIMIDEX [Suspect]
     Indication: BREAST CANCER
     Route: 048
     Dates: start: 200910, end: 20121108
  2. ARIMIDEX [Suspect]
     Indication: BREAST CANCER
     Route: 048
     Dates: start: 201212
  3. NEXIUM [Suspect]
     Indication: GASTROOESOPHAGEAL REFLUX DISEASE
     Route: 048
     Dates: start: 2012
  4. SYMBICORT PMDI [Suspect]
     Indication: WHEEZING
     Dosage: UNKNOWN BID
     Route: 055
     Dates: start: 201310
  5. SYMBICORT PMDI [Suspect]
     Indication: COUGH
     Dosage: UNKNOWN BID
     Route: 055
     Dates: start: 201310
  6. WARFARIN [Concomitant]
     Indication: THROMBOSIS
     Route: 048
     Dates: start: 201211
  7. MELOXICAM [Concomitant]
     Indication: ARTHRITIS
     Route: 048
  8. BABY ASPIRIN [Concomitant]
     Route: 048
     Dates: start: 200910, end: 20121108
  9. VITAMIN D [Concomitant]
     Dosage: 4000 IU DAILY
     Route: 048
     Dates: start: 2009

REACTIONS (7)
  - Pulmonary thrombosis [Recovered/Resolved]
  - Breast cancer [Unknown]
  - Dyspnoea [Unknown]
  - Productive cough [Unknown]
  - Wheezing [Unknown]
  - Intentional drug misuse [Unknown]
  - Drug dose omission [Unknown]
